FAERS Safety Report 22675460 (Version 3)
Quarter: 2024Q3

REPORT INFORMATION
  Report Type: Report from Study
  Country: GB (occurrence: GB)
  Receive Date: 20230706
  Receipt Date: 20240911
  Transmission Date: 20241016
  Serious: Yes (Hospitalization)
  Sender: NOVARTIS
  Company Number: GB-002147023-NVSC2023GB149934

PATIENT
  Sex: Female

DRUGS (1)
  1. COSENTYX [Suspect]
     Active Substance: SECUKINUMAB
     Indication: Psoriasis
     Dosage: 300 MG, Q2W (ONE PEN)
     Route: 058
     Dates: start: 20210818

REACTIONS (3)
  - Cellulitis [Unknown]
  - Psoriasis [Unknown]
  - Product dose omission issue [Unknown]
